FAERS Safety Report 17325498 (Version 1)
Quarter: 2020Q1

REPORT INFORMATION
  Report Type: Spontaneous
  Country: FR (occurrence: FR)
  Receive Date: 20200127
  Receipt Date: 20200127
  Transmission Date: 20200409
  Serious: Yes (Other)
  Sender: FDA-Public Use
  Company Number: FR-BRISTOL-MYERS SQUIBB COMPANY-BMS-2020-005393

PATIENT
  Age: 71 Year
  Sex: Female

DRUGS (1)
  1. ELIQUIS [Suspect]
     Active Substance: APIXABAN
     Indication: CEREBROVASCULAR ACCIDENT PROPHYLAXIS
     Dosage: 1 DOSAGE FORM, TOTAL
     Route: 048
     Dates: start: 20191218, end: 20191226

REACTIONS (2)
  - Toxic skin eruption [Unknown]
  - Rash morbilliform [Unknown]

NARRATIVE: CASE EVENT DATE: 20191226
